FAERS Safety Report 6051277-0 (Version None)
Quarter: 2009Q1

REPORT INFORMATION
  Report Type: 
  Country: None (occurrence: None)
  Receive Date: 20090126
  Receipt Date: 20090113
  Transmission Date: 20090719
  Serious: Yes (Other)
  Sender: FDA-Public Use
  Company Number: US-BIOGENIDEC-2008BI023433

PATIENT
  Age: 63 Year
  Sex: Male

DRUGS (14)
  1. TYSABRI [Suspect]
     Indication: MULTIPLE SCLEROSIS
     Route: 042
     Dates: start: 20080605
  2. SIMAVASTATIN [Concomitant]
  3. LEXAPRO [Concomitant]
  4. GABAPENTIN [Concomitant]
  5. SINGULAIR [Concomitant]
  6. OCYCODONE [Concomitant]
  7. BACLOFEN [Concomitant]
  8. TRAMADOL HCL [Concomitant]
  9. PROVIGIL [Concomitant]
  10. CYMBALTA [Concomitant]
  11. DIAZEPAM [Concomitant]
  12. OXCARBAZEPINE [Concomitant]
  13. ASPIRIN [Concomitant]
  14. CITALOPRAM HYDROBROMIDE [Concomitant]

REACTIONS (1)
  - PROSTATE CANCER [None]
